FAERS Safety Report 23442440 (Version 1)
Quarter: 2024Q1

REPORT INFORMATION
  Report Type: Other
  Country: IN (occurrence: None)
  Receive Date: 20240125
  Receipt Date: 20240125
  Transmission Date: 20240410
  Serious: Yes (Other)
  Sender: FDA-Public Use
  Company Number: IN-Navinta LLC-000483

PATIENT
  Age: 30 Year
  Sex: Male

DRUGS (3)
  1. PENICILLAMINE [Suspect]
     Active Substance: PENICILLAMINE
     Indication: Hepato-lenticular degeneration
     Dosage: 1 GM TWICE DAILY
     Route: 048
  2. ZINC [Concomitant]
     Active Substance: PYRITHIONE ZINC\ZINC\ZINC CHLORIDE
     Indication: Hepato-lenticular degeneration
     Dosage: 50 MG TWICE DAILY
     Route: 048
  3. PENICILLAMINE [Suspect]
     Active Substance: PENICILLAMINE
     Indication: Hepato-lenticular degeneration
     Dosage: 250 MG TWICE DAILY
     Route: 048

REACTIONS (1)
  - SJS-TEN overlap [Recovered/Resolved]
